FAERS Safety Report 26088090 (Version 1)
Quarter: 2025Q4

REPORT INFORMATION
  Report Type: Spontaneous
  Country: US (occurrence: US)
  Receive Date: 20251125
  Receipt Date: 20251125
  Transmission Date: 20260118
  Serious: No
  Sender: ROCHE
  Company Number: US-ROCHE-10000438965

PATIENT
  Age: 54 Year
  Sex: Female
  Weight: 96.62 kg

DRUGS (1)
  1. OCREVUS [Suspect]
     Active Substance: OCRELIZUMAB
     Indication: Relapsing-remitting multiple sclerosis
     Route: 042
     Dates: start: 202211

REACTIONS (4)
  - Road traffic accident [Unknown]
  - Fall [Unknown]
  - Hypoaesthesia [Unknown]
  - Body height decreased [Unknown]

NARRATIVE: CASE EVENT DATE: 20240101
